FAERS Safety Report 9521457 (Version 2)
Quarter: 2013Q4

REPORT INFORMATION
  Report Type: Spontaneous
  Country: US (occurrence: None)
  Receive Date: 20130909
  Receipt Date: 20131008
  Transmission Date: 20140711
  Serious: Yes (Other)
  Sender: FDA-Public Use
  Company Number: 2013037782

PATIENT
  Age: 52 Year
  Sex: Female

DRUGS (1)
  1. ZEMAIRA [Suspect]
     Route: 042

REACTIONS (5)
  - Sepsis [None]
  - Device related infection [None]
  - Wound infection [None]
  - Fatigue [None]
  - Device related sepsis [None]
